FAERS Safety Report 21690412 (Version 1)
Quarter: 2022Q4

REPORT INFORMATION
  Report Type: Spontaneous
  Country: US (occurrence: US)
  Receive Date: 20221206
  Receipt Date: 20221206
  Transmission Date: 20230113
  Serious: No
  Sender: FDA-Public Use
  Company Number: US-BIOMARINAP-US-2022-147014

PATIENT

DRUGS (4)
  1. PALYNZIQ [Suspect]
     Active Substance: PEGVALIASE-PQPZ
     Indication: Phenylketonuria
     Dosage: 2.5 MILLIGRAM, QW
     Route: 058
     Dates: start: 20221109
  2. KUVAN [Suspect]
     Active Substance: SAPROPTERIN DIHYDROCHLORIDE
     Indication: Phenylketonuria
     Dosage: 1500 MILLIGRAM
     Route: 065
     Dates: start: 2014
  3. ZYRTEC [Concomitant]
     Active Substance: CETIRIZINE HYDROCHLORIDE
     Indication: Premedication
     Dosage: 10 MILLIGRAM
     Dates: start: 20221105
  4. PEPCID [Concomitant]
     Active Substance: FAMOTIDINE
     Indication: Premedication
     Dosage: 20 MILLIGRAM
     Dates: start: 20221105

REACTIONS (5)
  - Pyrexia [Recovered/Resolved]
  - Nasal congestion [Recovered/Resolved]
  - Injection site reaction [Recovered/Resolved]
  - Injection site bruising [Recovered/Resolved]
  - Injection site rash [Recovered/Resolved]

NARRATIVE: CASE EVENT DATE: 20221101
